FAERS Safety Report 4686732-9 (Version None)
Quarter: 2005Q2

REPORT INFORMATION
  Report Type: 
  Country: None (occurrence: None)
  Receive Date: 20050608
  Receipt Date: 20050526
  Transmission Date: 20051028
  Serious: Yes (Other)
  Sender: FDA-Public Use
  Company Number: 2005079047

PATIENT
  Age: 25 Year
  Sex: Female

DRUGS (1)
  1. DEPO-PROVERA [Suspect]
     Indication: CONTRACEPTION
     Dosage: 150 MG (150 MG, DAILY, FIRST INJECTION), INTRAVENOUS
     Route: 042
     Dates: start: 19941001, end: 19941001

REACTIONS (4)
  - ACNE [None]
  - ARTHRALGIA [None]
  - MYALGIA [None]
  - UTERINE HAEMORRHAGE [None]
